FAERS Safety Report 8354044-8 (Version None)
Quarter: 2012Q2

REPORT INFORMATION
  Report Type: 
  Country: None (occurrence: None)
  Receive Date: 20120511
  Receipt Date: 20120504
  Transmission Date: 20120825
  Serious: Yes (Hospitalization)
  Sender: FDA-Public Use
  Company Number: FR-UCBSA-056886

PATIENT
  Age: 23 Year
  Sex: Female

DRUGS (6)
  1. LOVENOX [Concomitant]
     Dosage: DAILY DOSE: 4000 IU/0.4 ML
     Route: 058
     Dates: start: 20120305
  2. TRAMADOL HCL [Suspect]
     Dosage: DAILY DOSE: 100 MG
     Route: 048
     Dates: start: 20120305, end: 20120327
  3. ACETAMINOPHEN [Concomitant]
     Route: 048
     Dates: start: 20120308
  4. KEPPRA [Suspect]
     Indication: CONVULSION PROPHYLAXIS
     Dosage: DAILY DOSE: 500 MG
     Route: 048
     Dates: start: 20120225, end: 20120329
  5. TRANSIPEG [Concomitant]
     Dosage: 2 UNITS DAILY
     Route: 048
     Dates: start: 20120305
  6. ZOPICLONE [Concomitant]
     Route: 048
     Dates: start: 20120305

REACTIONS (1)
  - RASH MACULO-PAPULAR [None]
